FAERS Safety Report 14670852 (Version 1)
Quarter: 2018Q1

REPORT INFORMATION
  Report Type: Spontaneous
  Country: HU (occurrence: HU)
  Receive Date: 20180322
  Receipt Date: 20180322
  Transmission Date: 20180509
  Serious: Yes (Other)
  Sender: FDA-Public Use
  Company Number: HU-BAUSCH-BL-2018-007491

PATIENT
  Age: 61 Year
  Sex: Female

DRUGS (3)
  1. METRONIDAZOL [Suspect]
     Active Substance: METRONIDAZOLE
     Indication: INFECTION
     Route: 065
  2. CEFTRIAXONE SODIUM. [Suspect]
     Active Substance: CEFTRIAXONE SODIUM
     Indication: COLITIS
     Route: 065
  3. CEFTRIAXONE SODIUM. [Suspect]
     Active Substance: CEFTRIAXONE SODIUM
     Indication: PERITONITIS
     Route: 042

REACTIONS (6)
  - Ascites [Recovered/Resolved]
  - Atrial fibrillation [Recovered/Resolved]
  - Malabsorption [Recovered/Resolved]
  - Candida infection [Unknown]
  - Hypoalbuminaemia [Recovered/Resolved]
  - Hydrothorax [Recovered/Resolved]
